FAERS Safety Report 5863177-7 (Version None)
Quarter: 2008Q3

REPORT INFORMATION
  Report Type: 
  Country: None (occurrence: None)
  Receive Date: 20080828
  Receipt Date: 20080819
  Transmission Date: 20090109
  Serious: Yes (Hospitalization)
  Sender: FDA-Public Use
  Company Number: GB-ROCHE-581833

PATIENT
  Sex: Female
  Weight: 103.9 kg

DRUGS (9)
  1. ORLISTAT [Suspect]
     Indication: OBESITY
     Route: 048
     Dates: start: 20080805
  2. AMLODIPINE [Concomitant]
     Indication: HYPERTENSION
     Route: 048
  3. BISOPROLOL FUMARATE [Concomitant]
     Route: 048
  4. FLUDROCORTISON [Concomitant]
     Dosage: ENTERED AS FLUDORCORTISON. INDICATION: FOR ADRENALIN GLANDS
     Route: 048
  5. FRUSEMIDE [Concomitant]
     Dosage: ENTERED AS FRUSAMIDE
     Route: 048
  6. HYDROCORTISONE [Concomitant]
     Dosage: INDICATION: FOR ADRENALIN GLANDS
     Route: 048
  7. RAMIPRIL [Concomitant]
     Indication: HYPERTENSION
     Route: 048
  8. SIMVASTATIN [Concomitant]
     Route: 048
  9. ACETAMINOPHEN [Concomitant]
     Indication: ANALGESIC THERAPY
     Route: 048

REACTIONS (3)
  - CONTUSION [None]
  - FALL [None]
  - LOSS OF CONSCIOUSNESS [None]
